FAERS Safety Report 4748933-0 (Version None)
Quarter: 2005Q3

REPORT INFORMATION
  Report Type: 
  Country: None (occurrence: None)
  Receive Date: 20050819
  Receipt Date: 20041222
  Transmission Date: 20060218
  Serious: Yes (Hospitalization)
  Sender: FDA-Public Use
  Company Number: FR-MERCK-0412FRA00073

PATIENT
  Age: 81 Year
  Sex: Male

DRUGS (6)
  1. ZOCOR [Suspect]
     Route: 048
     Dates: start: 20040901, end: 20041127
  2. NITROFURANTOIN [Suspect]
     Indication: URINARY TRACT INFECTION
     Route: 048
     Dates: start: 20041021, end: 20041125
  3. FLUINDIONE [Suspect]
     Indication: PROPHYLAXIS
     Route: 048
     Dates: start: 20040929, end: 20041127
  4. VASOTEC RPD [Concomitant]
     Route: 048
  5. ALFUZOSIN HYDROCHLORIDE [Concomitant]
     Route: 048
     Dates: end: 20041127
  6. GABAPENTIN [Concomitant]
     Indication: NEUROPATHY
     Route: 048
     Dates: start: 19980615, end: 20041127

REACTIONS (2)
  - CYTOMEGALOVIRUS TEST POSITIVE [None]
  - LEUKOCYTOCLASTIC VASCULITIS [None]
